FAERS Safety Report 8027689-2 (Version None)
Quarter: 2012Q1

REPORT INFORMATION
  Report Type: 
  Country: None (occurrence: None)
  Receive Date: 20120104
  Receipt Date: 20111220
  Transmission Date: 20120608
  Serious: Yes (Other)
  Sender: FDA-Public Use
  Company Number: FR-SEPTODONT-201100249

PATIENT
  Sex: Male
  Weight: 89 kg

DRUGS (2)
  1. ARTICAINE HYDROCHLORIDE [Suspect]
     Dosage: 2 DF 1X/TOTAL DENTAL
     Route: 004
     Dates: start: 20111116
  2. ARTICAINE HYDROCHLORIDE WITH EPINEPHRINE [Suspect]
     Indication: LOCAL ANAESTHESIA
     Dosage: 6 DF 1X/TOTAL DENTAL
     Route: 004
     Dates: start: 20111116

REACTIONS (4)
  - TREMOR [None]
  - PALPITATIONS [None]
  - MUSCLE CONTRACTIONS INVOLUNTARY [None]
  - CHEST PAIN [None]
